FAERS Safety Report 4816158-6 (Version None)
Quarter: 2005Q4

REPORT INFORMATION
  Report Type: 
  Country: None (occurrence: None)
  Receive Date: 20051026
  Receipt Date: 20051011
  Transmission Date: 20060501
  Serious: Yes (Hospitalization)
  Sender: FDA-Public Use
  Company Number: 2005S1000300

PATIENT
  Age: 80 Year
  Sex: Female

DRUGS (2)
  1. ACITRETIN [Suspect]
     Indication: SQUAMOUS CELL CARCINOMA
     Dosage: 10 MG; QD; PO
     Route: 048
  2. ACITRETIN [Suspect]
     Indication: SQUAMOUS CELL CARCINOMA
     Dosage: QD; PO
     Route: 048

REACTIONS (2)
  - CHOLELITHIASIS [None]
  - PANCREATITIS [None]
